FAERS Safety Report 11398001 (Version 1)
Quarter: 2015Q3

REPORT INFORMATION
  Report Type: Spontaneous
  Country: US (occurrence: US)
  Receive Date: 20150820
  Receipt Date: 20150820
  Transmission Date: 20151125
  Serious: Yes (Disabling)
  Sender: FDA-Public Use
  Company Number: US-HOSPIRA-2974763

PATIENT
  Age: 42 Year
  Sex: Male

DRUGS (1)
  1. PENTAZOCINE LACTATE [Suspect]
     Active Substance: PENTAZOCINE LACTATE
     Indication: ABDOMINAL PAIN UPPER
     Dosage: DAILY
     Route: 030

REACTIONS (2)
  - Muscle fibrosis [Unknown]
  - Myopathy [Unknown]
